FAERS Safety Report 21843134 (Version 1)
Quarter: 2023Q1

REPORT INFORMATION
  Report Type: Spontaneous
  Country: US (occurrence: None)
  Receive Date: 20230109
  Receipt Date: 20230109
  Transmission Date: 20230418
  Serious: Yes (Disabling)
  Sender: FDA-Public Use
  Company Number: None

PATIENT
  Age: 50 Year
  Sex: Female

DRUGS (1)
  1. LOSARTAN POTASSIUM [Suspect]
     Active Substance: LOSARTAN POTASSIUM
     Indication: Hypertension
     Dosage: FREQUENCY : DAILY;?
     Route: 048
     Dates: start: 20221219, end: 20230104

REACTIONS (6)
  - Cough [None]
  - Oropharyngeal pain [None]
  - Presyncope [None]
  - Pain [None]
  - Therapy cessation [None]
  - Product prescribing error [None]

NARRATIVE: CASE EVENT DATE: 20221223
